FAERS Safety Report 5578808-9 (Version None)
Quarter: 2007Q4

REPORT INFORMATION
  Report Type: 
  Country: None (occurrence: None)
  Receive Date: 20071228
  Receipt Date: 20071228
  Transmission Date: 20080405
  Serious: Yes (Other)
  Sender: FDA-Public Use
  Company Number: None

PATIENT
  Age: 54 Year
  Sex: Male
  Weight: 86.9 kg

DRUGS (7)
  1. BORTEZOMIB [Suspect]
     Indication: MANTLE CELL LYMPHOMA
     Dosage: B-2.6MG  B=D1+4  IV
     Route: 042
     Dates: start: 20071203
  2. BORTEZOMIB [Suspect]
     Indication: MANTLE CELL LYMPHOMA
     Dosage: B-2.6MG  B=D1+4  IV
     Route: 042
     Dates: start: 20071206
  3. CYCLOPHOSPHAMIDE [Suspect]
     Indication: MANTLE CELL LYMPHOMA
     Dosage: C=600MG  C=D1,2,3  IV
     Route: 042
     Dates: start: 20071203
  4. RITUXAN [Suspect]
     Indication: MANTLE CELL LYMPHOMA
     Route: 042
     Dates: start: 20071203
  5. DOXORUBICIN HCL [Suspect]
     Dosage: DOX=50MG  DOX=D1-2  CIV
     Route: 042
     Dates: start: 20071203, end: 20071204
  6. DEXAMETHASONE [Suspect]
     Dosage: DEX=1-4
     Route: 048
     Dates: start: 20071203, end: 20071206
  7. VINCRISTINE [Suspect]
     Dosage: VCR=1MG D3  IV
     Route: 042
     Dates: start: 20071205

REACTIONS (1)
  - PULMONARY EMBOLISM [None]
